FAERS Safety Report 18483820 (Version 10)
Quarter: 2021Q3

REPORT INFORMATION
  Report Type: Report from Study
  Country: US (occurrence: US)
  Receive Date: 20201109
  Receipt Date: 20210723
  Transmission Date: 20211014
  Serious: Yes (Hospitalization, Other)
  Sender: FDA-Public Use
  Company Number: US-EMD SERONO-9150022

PATIENT
  Age: 59 Year
  Sex: Male

DRUGS (13)
  1. MORPHINE [Suspect]
     Active Substance: MORPHINE
     Indication: PAIN
     Dosage: THERAPY START DATE? SEP 2020
  2. REBIF [Suspect]
     Active Substance: INTERFERON BETA-1A
     Indication: MULTIPLE SCLEROSIS
     Route: 058
     Dates: start: 20130722
  3. FLONASE                            /00908302/ [Suspect]
     Active Substance: MOMETASONE FUROATE
     Indication: RESPIRATORY TRACT INFECTION
  4. CISPLATIN. [Suspect]
     Active Substance: CISPLATIN
     Indication: PULMONARY MASS
  5. REBIF [Suspect]
     Active Substance: INTERFERON BETA-1A
     Route: 058
     Dates: start: 20131126
  6. GEMZAR [Suspect]
     Active Substance: GEMCITABINE HYDROCHLORIDE
     Indication: PULMONARY MASS
  7. GABAPENTIN. [Concomitant]
     Active Substance: GABAPENTIN
     Indication: SCIATICA
  8. ALEVE [Concomitant]
     Active Substance: NAPROXEN SODIUM
     Indication: PREMEDICATION
  9. TYLENOL [Concomitant]
     Active Substance: ACETAMINOPHEN
     Indication: INFLUENZA LIKE ILLNESS
  10. TYLENOL [Concomitant]
     Active Substance: ACETAMINOPHEN
     Indication: PREMEDICATION
  11. ADVIL (MEFENAMIC ACID) [Concomitant]
     Active Substance: MEFENAMIC ACID
     Indication: PREMEDICATION
  12. FLONASE                            /00908302/ [Suspect]
     Active Substance: MOMETASONE FUROATE
     Indication: SINUSITIS
     Route: 045
  13. GABAPENTIN. [Concomitant]
     Active Substance: GABAPENTIN

REACTIONS (38)
  - Psychotic disorder [Unknown]
  - Asthenia [Unknown]
  - Platelet count decreased [Unknown]
  - Respiratory tract infection [Recovered/Resolved]
  - Ageusia [Recovered/Resolved]
  - Laboratory test abnormal [Unknown]
  - Dehydration [Unknown]
  - Drug interaction [Unknown]
  - Weight decreased [Recovering/Resolving]
  - Headache [Unknown]
  - Decreased appetite [Unknown]
  - Constipation [Unknown]
  - Chills [Unknown]
  - Sinusitis [Recovered/Resolved]
  - Alopecia [Unknown]
  - Dyspnoea [Recovering/Resolving]
  - Back pain [Unknown]
  - Parosmia [Unknown]
  - Anxiety [Unknown]
  - Drug intolerance [Unknown]
  - Sciatica [Recovering/Resolving]
  - Blood pressure abnormal [Unknown]
  - Product dose omission issue [Recovered/Resolved]
  - Benign lung neoplasm [Recovering/Resolving]
  - Renal impairment [Unknown]
  - Volume blood decreased [Unknown]
  - White blood cell count decreased [Unknown]
  - Injection site induration [Unknown]
  - Injection site nodule [Unknown]
  - Injection site reaction [Unknown]
  - Weight gain poor [Unknown]
  - Dysuria [Unknown]
  - Fatigue [Unknown]
  - Anaesthetic complication [Unknown]
  - Arthralgia [Recovered/Resolved]
  - Anosmia [Recovered/Resolved]
  - Thirst [Unknown]
  - Petechiae [Unknown]

NARRATIVE: CASE EVENT DATE: 2020
